FAERS Safety Report 4884273-7 (Version None)
Quarter: 2005Q4

REPORT INFORMATION
  Report Type: 
  Country: None (occurrence: None)
  Receive Date: 20051201
  Receipt Date: 20050912
  Transmission Date: 20060501
  Serious: No
  Sender: FDA-Public Use
  Company Number: 2005PV002017

PATIENT
  Age: 54 Year
  Sex: Male
  Weight: 113.6261 kg

DRUGS (12)
  1. BYETTA [Suspect]
     Indication: DIABETES MELLITUS NON-INSULIN-DEPENDENT
     Dosage: 5 MCG; SC
     Route: 058
     Dates: start: 20050909
  2. HUMALOG [Concomitant]
  3. MIRAPEX ^PHARMACIA + UPJOHN^ [Concomitant]
  4. NEURONTIN [Concomitant]
  5. LORAZEPAM [Concomitant]
  6. FLUVOXAMINE MALEATE [Concomitant]
  7. ALLOPURINOL [Concomitant]
  8. ZYPREXA [Concomitant]
  9. GLYCOLAX [Concomitant]
  10. LASIX [Concomitant]
  11. SPIRONOLACTONE [Concomitant]
  12. PREVACID [Concomitant]

REACTIONS (4)
  - DECREASED APPETITE [None]
  - HEADACHE [None]
  - NAUSEA [None]
  - WEIGHT DECREASED [None]
